FAERS Safety Report 20234337 (Version 1)
Quarter: 2021Q4

REPORT INFORMATION
  Report Type: Spontaneous
  Country: US (occurrence: US)
  Receive Date: 20211227
  Receipt Date: 20211227
  Transmission Date: 20220304
  Serious: No
  Sender: FDA-Public Use
  Company Number: US-FOUNDATIONCONSUMERHC-2021-US-021611

PATIENT
  Sex: Female
  Weight: 50.8 kg

DRUGS (1)
  1. TAKE ACTION [Suspect]
     Active Substance: LEVONORGESTREL
     Indication: Post coital contraception
     Dosage: 1 DOSE
     Route: 048
     Dates: start: 202106, end: 202106

REACTIONS (3)
  - Vomiting [Unknown]
  - Nausea [Unknown]
  - Dysmenorrhoea [Unknown]
